FAERS Safety Report 22241171 (Version 4)
Quarter: 2024Q1

REPORT INFORMATION
  Report Type: Report from Study
  Country: US (occurrence: US)
  Receive Date: 20230421
  Receipt Date: 20240208
  Transmission Date: 20240409
  Serious: Yes (Other)
  Sender: FDA-Public Use
  Company Number: US-002147023-NVSC2023US085496

PATIENT
  Age: 73 Year
  Sex: Male

DRUGS (1)
  1. LEQVIO [Suspect]
     Active Substance: INCLISIRAN SODIUM
     Indication: Product used for unknown indication
     Dosage: UNK (284 MG/1.5 ML (EVERY 6 MONTHS))
     Route: 058
     Dates: start: 20230403

REACTIONS (8)
  - Coronary artery occlusion [Unknown]
  - Chest pain [Unknown]
  - Pain [Unknown]
  - Influenza like illness [Unknown]
  - Arthralgia [Unknown]
  - Back pain [Unknown]
  - COVID-19 [Unknown]
  - Immunisation reaction [Unknown]

NARRATIVE: CASE EVENT DATE: 20230403
